FAERS Safety Report 4906713-7 (Version None)
Quarter: 2006Q1

REPORT INFORMATION
  Report Type: 
  Country: None (occurrence: None)
  Receive Date: 20060207
  Receipt Date: 20060112
  Transmission Date: 20060701
  Serious: Yes (Other)
  Sender: FDA-Public Use
  Company Number: CA200601002059

PATIENT
  Age: 15 Year
  Sex: Male
  Weight: 45.6 kg

DRUGS (4)
  1. SOMATROPIN (SOMATROPIN) [Suspect]
     Indication: GROWTH HORMONE DEFICIENCY
     Dosage: 1.4 MG, 6/W, SUBCUTANEOUS
     Route: 058
     Dates: start: 20051116
  2. CORTEF [Concomitant]
  3. THYROXINE   APS   (LEVOTHYROXINE) [Concomitant]
  4. DDAVP [Concomitant]

REACTIONS (4)
  - ACIDOSIS [None]
  - CONDITION AGGRAVATED [None]
  - DIABETES MELLITUS INSULIN-DEPENDENT [None]
  - KETONURIA [None]
